FAERS Safety Report 4285717-4 (Version None)
Quarter: 2004Q1

REPORT INFORMATION
  Report Type: 
  Country: None (occurrence: None)
  Receive Date: 20040204
  Receipt Date: 20040123
  Transmission Date: 20041129
  Serious: Yes (Hospitalization)
  Sender: FDA-Public Use
  Company Number: PERI00204000198

PATIENT
  Age: 91 Year
  Sex: Female

DRUGS (9)
  1. COVERSYL (PERINDOPRIL) [Suspect]
     Indication: HYPERTENSION
     Dosage: 8 MG DAILY PO
     Route: 048
     Dates: start: 20020604, end: 20031208
  2. LASIX [Concomitant]
  3. LANDEL (EFONIDIPINE HYDROCHLORIDE) [Concomitant]
  4. ISOSORBIDE DINITRATE [Concomitant]
  5. ALTAT (ROXATIDINE ACETATE HYDROCHLORIDE) [Concomitant]
  6. AMOBAN (ZOPICLONE) [Concomitant]
  7. BAYASPIRINA (ACETYLSALICYCLIC ACID) [Concomitant]
  8. FOIPAN (CAMOSTAT MESILATE) [Concomitant]
  9. EPOGEN [Concomitant]

REACTIONS (4)
  - ABDOMINAL PAIN [None]
  - BLOOD UREA INCREASED [None]
  - HYPERKALAEMIA [None]
  - PANCREATITIS CHRONIC [None]
